FAERS Safety Report 8575684-7 (Version None)
Quarter: 2012Q3

REPORT INFORMATION
  Report Type: 
  Country: None (occurrence: None)
  Receive Date: 20120807
  Receipt Date: 20120803
  Transmission Date: 20120928
  Serious: Yes (Other)
  Sender: FDA-Public Use
  Company Number: PHHY2012FI067114

PATIENT
  Age: 59 Year
  Sex: Female

DRUGS (8)
  1. ANALGESICS [Concomitant]
     Indication: ORAL PAIN
  2. MELPHALAN HYDROCHLORIDE [Concomitant]
     Indication: MULTIPLE MYELOMA
     Dosage: 200 MG/M2, UNK
  3. CLODRONATE DISODIUM [Concomitant]
     Indication: MULTIPLE MYELOMA
     Dosage: 1600 MG/DAY
  4. DEXAMETHASONE [Concomitant]
     Indication: MULTIPLE MYELOMA
     Dosage: 40 MG/DAY GIVEN ON DAYS 1-4, 9-12, AND 17-20 OF A 28-DAY CYCLE, ALTOGETHER RECEIVED SEVEN CYCLES
  5. THALIDOMIDE [Concomitant]
     Indication: MULTIPLE MYELOMA
     Dosage: 100 MG/DAY- LAST THREE CYCLES
  6. BORTEZOMIB [Concomitant]
     Indication: MULTIPLE MYELOMA
     Dosage: 20 MG DAILY
  7. DEXAMETHASONE [Concomitant]
     Dosage: 20 MG/DAY
  8. ZOLEDRONIC ACID [Suspect]
     Dosage: 4 MG I.V. ONCE A MONTH FOR 6 MONTHS

REACTIONS (2)
  - OSTEONECROSIS OF JAW [None]
  - ORAL CAVITY FISTULA [None]
